FAERS Safety Report 4369724-9 (Version None)
Quarter: 2004Q2

REPORT INFORMATION
  Report Type: 
  Country: None (occurrence: None)
  Receive Date: 20040525
  Receipt Date: 20040517
  Transmission Date: 20050107
  Serious: Yes (Hospitalization, Other)
  Sender: FDA-Public Use
  Company Number: USA-2004-0013726

PATIENT
  Age: 54 Year
  Sex: Female

DRUGS (2)
  1. OXYCONTIN [Suspect]
     Indication: PAIN
     Dosage: SEE IMAGE
     Route: 048
     Dates: start: 19990413, end: 20040226
  2. PREDNISONE TAB [Concomitant]

REACTIONS (5)
  - GASTROENTERITIS [None]
  - NARCOLEPSY [None]
  - PANCREATITIS ACUTE [None]
  - RESPIRATORY DISORDER [None]
  - SEDATION [None]
